FAERS Safety Report 16797063 (Version 3)
Quarter: 2019Q4

REPORT INFORMATION
  Report Type: Spontaneous
  Country: JP (occurrence: JP)
  Receive Date: 20190911
  Receipt Date: 20191126
  Transmission Date: 20200122
  Serious: Yes (Death, Hospitalization)
  Sender: FDA-Public Use
  Company Number: PHJP2019JP011950

PATIENT
  Age: 77 Year
  Sex: Male
  Weight: 73 kg

DRUGS (7)
  1. METHYLPREDNISOLONE SODIUM SUCCINATE. [Concomitant]
     Active Substance: METHYLPREDNISOLONE SODIUM SUCCINATE
     Indication: PROPHYLAXIS
     Dosage: 150 MG, QD
     Route: 041
     Dates: start: 20180723, end: 20180728
  2. ATOVAQUONE. [Concomitant]
     Active Substance: ATOVAQUONE
     Indication: PROPHYLAXIS
     Dosage: 10 ML, QD
     Route: 048
     Dates: start: 20180723, end: 20181116
  3. NEORAL [Suspect]
     Active Substance: CYCLOSPORINE
     Indication: APLASTIC ANAEMIA
     Dosage: 30 MG, BID
     Route: 048
     Dates: start: 20131115, end: 20180124
  4. ANTITHYMOCYTE IMMUNOGLOBULIN (HORSE) [Concomitant]
     Active Substance: EQUINE THYMOCYTE IMMUNE GLOBULIN
     Indication: APLASTIC ANAEMIA
     Dosage: 250 MG, QD
     Route: 041
     Dates: start: 20180723, end: 20180727
  5. METENOLONE ACETATE [Concomitant]
     Active Substance: METHENOLONE ACETATE
     Indication: APLASTIC ANAEMIA
     Dosage: 5 MG, TID
     Route: 048
     Dates: start: 20131025, end: 20181116
  6. REVOLADE TAB [Suspect]
     Active Substance: ELTROMBOPAG
     Indication: APLASTIC ANAEMIA
     Dosage: 100 MG, QD
     Route: 048
     Dates: start: 20170920, end: 20181116
  7. PREDNISOLON [Concomitant]
     Active Substance: PREDNISOLONE
     Indication: PROPHYLAXIS
     Dosage: 35 MG, QOD
     Route: 048
     Dates: start: 20180730, end: 20180811

REACTIONS (7)
  - Disease progression [Fatal]
  - Oral haemangioma [Recovered/Resolved]
  - Gastrointestinal haemorrhage [Fatal]
  - Platelet count decreased [Fatal]
  - Aplastic anaemia [Fatal]
  - Anaemia [Fatal]
  - Therapy non-responder [Unknown]

NARRATIVE: CASE EVENT DATE: 20180125
